FAERS Safety Report 17060893 (Version 1)
Quarter: 2019Q4

REPORT INFORMATION
  Report Type: Spontaneous
  Country: BY (occurrence: BY)
  Receive Date: 20191121
  Receipt Date: 20191121
  Transmission Date: 20200122
  Serious: Yes (Other)
  Sender: FDA-Public Use
  Company Number: NVSC2019BY039949

PATIENT
  Age: 28 Year
  Sex: Male
  Weight: 73 kg

DRUGS (29)
  1. FLUCONAZOLE. [Concomitant]
     Active Substance: FLUCONAZOLE
     Indication: PRODUCT USED FOR UNKNOWN INDICATION
     Dosage: UNK
     Route: 065
     Dates: start: 20190730, end: 20190814
  2. IMIPENEM AND CILASTATIN FOR INJECTION USP [Suspect]
     Active Substance: CILASTATIN SODIUM\IMIPENEM
     Indication: TUBERCULOSIS
     Dosage: 2000 OT (6 DAYS PER WEEK)
     Route: 042
     Dates: start: 20190524, end: 20190724
  3. IMIPENEM AND CILASTATIN FOR INJECTION USP [Suspect]
     Active Substance: CILASTATIN SODIUM\IMIPENEM
     Dosage: 2000 OT (6 DAYS PER WEEK)
     Route: 065
     Dates: start: 20190730
  4. AMOXICILLIN TRIHYDRATE,POTASSIUM CLAVULANATE [Suspect]
     Active Substance: AMOXICILLIN\CLAVULANATE POTASSIUM
     Dosage: 2000 OT (6 DAYS PER WEEK)
     Route: 065
     Dates: start: 20190730
  5. CYCLOSERINE. [Concomitant]
     Active Substance: CYCLOSERINE
     Indication: TUBERCULOSIS
     Dosage: UNK
     Route: 065
     Dates: start: 20190524, end: 20190604
  6. CYCLOSERINE. [Concomitant]
     Active Substance: CYCLOSERINE
     Dosage: UNK
     Route: 065
     Dates: start: 20190624, end: 20190730
  7. MOXIFLOXACIN. [Concomitant]
     Active Substance: MOXIFLOXACIN
     Indication: TUBERCULOSIS
     Dosage: UNK
     Route: 065
     Dates: start: 20190724, end: 20190730
  8. DACLATASVIR. [Concomitant]
     Active Substance: DACLATASVIR
     Indication: HEPATITIS C
     Dosage: UNK
     Route: 065
     Dates: start: 20190624, end: 20190724
  9. COTRIMOXAZOLE [Concomitant]
     Active Substance: SULFAMETHOXAZOLE\TRIMETHOPRIM
     Indication: PRODUCT USED FOR UNKNOWN INDICATION
     Dosage: UNK
     Route: 065
     Dates: start: 20190730, end: 20190814
  10. AMOXICILLIN TRIHYDRATE,POTASSIUM CLAVULANATE [Suspect]
     Active Substance: AMOXICILLIN\CLAVULANATE POTASSIUM
     Indication: TUBERCULOSIS
     Dosage: 2000 OT (6 DAYS PER WEEK)
     Route: 048
     Dates: start: 20190524, end: 20190724
  11. CLOFAZIMINE [Suspect]
     Active Substance: CLOFAZIMINE
     Indication: TUBERCULOSIS
     Dosage: 100 OT, QD (7 DAYS PER WEEK)
     Route: 048
     Dates: start: 20190524, end: 20190604
  12. CLOFAZIMINE [Suspect]
     Active Substance: CLOFAZIMINE
     Dosage: 100 OT (7 DAYS PER WEEK)
     Route: 065
     Dates: start: 20190624, end: 20190814
  13. LINEZOLID. [Suspect]
     Active Substance: LINEZOLID
     Dosage: 600 OT (6 DAYS PER WEEK)
     Route: 065
     Dates: start: 20190604
  14. LINEZOLID. [Suspect]
     Active Substance: LINEZOLID
     Dosage: 600 OT, QD (7 DAYS PER WEEK)
     Route: 065
     Dates: start: 20190624, end: 20190814
  15. SOFOSBUVIR [Concomitant]
     Active Substance: SOFOSBUVIR
     Indication: HEPATITIS C
     Dosage: UNK
     Route: 065
     Dates: start: 20190624, end: 20190724
  16. CLOFAZIMINE [Suspect]
     Active Substance: CLOFAZIMINE
     Dosage: 100 OT (6 DAYS PER WEEK)
     Route: 065
     Dates: start: 20190604
  17. LINEZOLID. [Suspect]
     Active Substance: LINEZOLID
     Dosage: 600 OT (6 DAYS PER WEEK)
     Route: 065
     Dates: start: 20190820, end: 20190917
  18. DELTYBA [Suspect]
     Active Substance: DELAMANID
     Dosage: 200 OT (6 DAYS PER WEEK)
     Route: 065
     Dates: start: 20190820, end: 20190917
  19. BEDAQUILINE [Suspect]
     Active Substance: BEDAQUILINE
     Indication: TUBERCULOSIS
     Dosage: 200 OT (3 DAYS PER WEEK)
     Route: 048
     Dates: start: 20190524, end: 20190814
  20. COTRIMOXAZOLE [Concomitant]
     Active Substance: SULFAMETHOXAZOLE\TRIMETHOPRIM
     Dosage: UNK
     Route: 065
     Dates: start: 20190821, end: 20190917
  21. TENOF EM [Concomitant]
     Indication: PRODUCT USED FOR UNKNOWN INDICATION
     Dosage: UNK
     Route: 065
     Dates: start: 20190730, end: 20190814
  22. CLOFAZIMINE [Suspect]
     Active Substance: CLOFAZIMINE
     Dosage: 100 OT (6 DAYS PER WEEK)
     Route: 065
     Dates: start: 20190820, end: 20190917
  23. BEDAQUILINE [Suspect]
     Active Substance: BEDAQUILINE
     Dosage: 200 OT (3 DAYS PER WEEK)
     Route: 065
     Dates: start: 20190820, end: 20190917
  24. CYCLOSERINE. [Concomitant]
     Active Substance: CYCLOSERINE
     Dosage: UNK
     Route: 065
     Dates: start: 20190604, end: 20190624
  25. PYRIDOXINE [Concomitant]
     Active Substance: PYRIDOXINE
     Indication: PRODUCT USED FOR UNKNOWN INDICATION
     Dosage: UNK
     Route: 065
     Dates: start: 20190730, end: 20190814
  26. PYRIDOXINE [Concomitant]
     Active Substance: PYRIDOXINE
     Dosage: UNK
     Route: 065
     Dates: start: 20190815, end: 20190917
  27. LINEZOLID. [Suspect]
     Active Substance: LINEZOLID
     Indication: TUBERCULOSIS
     Dosage: 600 OT, QD (7 DAYS PER WEEK)
     Route: 048
     Dates: start: 20190524, end: 20190604
  28. DELTYBA [Suspect]
     Active Substance: DELAMANID
     Indication: TUBERCULOSIS
     Dosage: 200 OT, QD (7 DAYS PER WEEK)
     Route: 048
     Dates: start: 20190730, end: 20190814
  29. DOLUTEGRAVIR [Concomitant]
     Active Substance: DOLUTEGRAVIR
     Indication: PRODUCT USED FOR UNKNOWN INDICATION
     Dosage: UNK
     Route: 065
     Dates: start: 20190730, end: 20190814

REACTIONS (1)
  - Hepatotoxicity [Unknown]

NARRATIVE: CASE EVENT DATE: 20190808
